FAERS Safety Report 9347464 (Version 1)
Quarter: 2013Q2

REPORT INFORMATION
  Report Type: Spontaneous
  Country: US (occurrence: US)
  Receive Date: 20130614
  Receipt Date: 20130614
  Transmission Date: 20140414
  Serious: No
  Sender: FDA-Public Use
  Company Number: US-ASTRAZENECA-2013SE38509

PATIENT
  Age: 60 Year
  Sex: Female
  Weight: 59 kg

DRUGS (2)
  1. ANASTROZOLE [Suspect]
     Indication: BREAST CANCER FEMALE
     Dosage: 1 MG DAILY, GENERIC
     Route: 048
     Dates: start: 201305
  2. ADVIL [Concomitant]
     Indication: BACK PAIN
     Dosage: PRN
     Route: 048

REACTIONS (5)
  - Back pain [Recovered/Resolved]
  - Parosmia [Unknown]
  - Hyperaesthesia [Unknown]
  - Back pain [Unknown]
  - Pruritus [Unknown]
